FAERS Safety Report 11307904 (Version 1)
Quarter: 2015Q3

REPORT INFORMATION
  Report Type: Spontaneous
  Country: IT (occurrence: IT)
  Receive Date: 20150724
  Receipt Date: 20150724
  Transmission Date: 20151125
  Serious: Yes (Hospitalization)
  Sender: FDA-Public Use
  Company Number: IT-009507513-1507ITA007343

PATIENT
  Age: 61 Year
  Sex: Female
  Weight: 65 kg

DRUGS (7)
  1. REBETOL [Suspect]
     Active Substance: RIBAVIRIN
     Indication: CHRONIC HEPATITIS C
     Dosage: 800 MG DAILY
     Route: 048
     Dates: start: 20150529, end: 20150703
  2. OLYSIO [Suspect]
     Active Substance: SIMEPREVIR
     Indication: CHRONIC HEPATITIS C
     Dosage: 150 MG DAILY
     Route: 048
     Dates: start: 20150529, end: 20150712
  3. SOVALDI [Suspect]
     Active Substance: SOFOSBUVIR
     Indication: CHRONIC HEPATITIS C
     Dosage: 400 MG DAILY
     Route: 048
     Dates: start: 20150529, end: 20150712
  4. LOBIVON [Concomitant]
     Active Substance: NEBIVOLOL HYDROCHLORIDE
     Dosage: UNK
  5. ZESTRIL [Concomitant]
     Active Substance: LISINOPRIL
     Dosage: UNK
  6. REBETOL [Suspect]
     Active Substance: RIBAVIRIN
     Dosage: 400 MG DAILY
     Route: 048
     Dates: start: 20150704, end: 20150712
  7. DOXAZOSIN [Concomitant]
     Active Substance: DOXAZOSIN\DOXAZOSIN MESYLATE
     Dosage: UNK

REACTIONS (4)
  - Lip oedema [Unknown]
  - Oedema peripheral [Unknown]
  - Rash [Unknown]
  - Periorbital oedema [Unknown]

NARRATIVE: CASE EVENT DATE: 20150711
